FAERS Safety Report 10931971 (Version 8)
Quarter: 2015Q4

REPORT INFORMATION
  Report Type: Report from Study
  Country: US (occurrence: US)
  Receive Date: 20150319
  Receipt Date: 20151027
  Transmission Date: 20160304
  Serious: Yes (Hospitalization, Other)
  Sender: FDA-Public Use
  Company Number: US-ALEXION PHARMACEUTICALS INC-A201500834

PATIENT
  Sex: Female

DRUGS (1)
  1. SOLIRIS [Suspect]
     Active Substance: ECULIZUMAB
     Indication: HAEMOLYTIC URAEMIC SYNDROME
     Dosage: UNK
     Route: 042

REACTIONS (9)
  - Peripheral swelling [Unknown]
  - Body temperature abnormal [Unknown]
  - Candida infection [Unknown]
  - Headache [Not Recovered/Not Resolved]
  - Postoperative wound infection [Unknown]
  - Mental status changes [Recovering/Resolving]
  - Gait disturbance [Unknown]
  - Confusional state [Unknown]
  - Pseudomonas infection [Unknown]

NARRATIVE: CASE EVENT DATE: 20150418
